FAERS Safety Report 20436653 (Version 1)
Quarter: 2022Q1

REPORT INFORMATION
  Report Type: Spontaneous
  Country: NO (occurrence: NO)
  Receive Date: 20220207
  Receipt Date: 20220207
  Transmission Date: 20220423
  Serious: Yes (Life-Threatening, Hospitalization)
  Sender: FDA-Public Use
  Company Number: NO-Accord-252563

PATIENT
  Age: 69 Year
  Sex: Female
  Weight: 85 kg

DRUGS (4)
  1. ONDANSETRON [Suspect]
     Active Substance: ONDANSETRON
     Indication: Product used for unknown indication
     Dates: start: 20210329, end: 20210407
  2. SEMAGLUTIDE [Suspect]
     Active Substance: SEMAGLUTIDE
     Indication: Obesity
     Dosage: MSK
     Dates: start: 20200803, end: 20210105
  3. CAPECITABINE [Concomitant]
     Active Substance: CAPECITABINE
     Dates: start: 20210316, end: 20210325
  4. OXALIPLATIN [Concomitant]
     Active Substance: OXALIPLATIN
     Dates: start: 20210316, end: 20210316

REACTIONS (1)
  - Dehydration [Recovered/Resolved]

NARRATIVE: CASE EVENT DATE: 20210525
